FAERS Safety Report 7563812-1 (Version None)
Quarter: 2011Q2

REPORT INFORMATION
  Report Type: 
  Country: None (occurrence: None)
  Receive Date: 20110621
  Receipt Date: 20110621
  Transmission Date: 20111010
  Serious: No
  Sender: FDA-Public Use
  Company Number: None

PATIENT
  Sex: Male
  Weight: 99 kg

DRUGS (1)
  1. BUPIVACAINE 5MG/ML HOSPIRA [Suspect]
     Dosage: 40MG ONCE INJ
     Dates: start: 20110214

REACTIONS (5)
  - CONVULSION [None]
  - TOXICITY TO VARIOUS AGENTS [None]
  - ANAESTHETIC COMPLICATION [None]
  - LOSS OF CONSCIOUSNESS [None]
  - HEART RATE DECREASED [None]
